FAERS Safety Report 10450407 (Version 2)
Quarter: 2014Q4

REPORT INFORMATION
  Report Type: Spontaneous
  Country: CH (occurrence: CH)
  Receive Date: 20140912
  Receipt Date: 20141007
  Transmission Date: 20150528
  Serious: Yes (Other)
  Sender: FDA-Public Use
  Company Number: CH-GILEAD-2014-0114818

PATIENT
  Sex: Male

DRUGS (1)
  1. RANOLAZINE [Suspect]
     Active Substance: RANOLAZINE
     Indication: ANGINA PECTORIS
     Dosage: 750 MG, UNK
     Route: 048
     Dates: start: 2012

REACTIONS (1)
  - Sputum increased [Unknown]

NARRATIVE: CASE EVENT DATE: 2014
